FAERS Safety Report 4803413-9 (Version None)
Quarter: 2005Q4

REPORT INFORMATION
  Report Type: 
  Country: None (occurrence: None)
  Receive Date: 20051013
  Receipt Date: 20050928
  Transmission Date: 20060501
  Serious: Yes (Hospitalization, Other)
  Sender: FDA-Public Use
  Company Number: USA-2004-0016323

PATIENT
  Age: 64 Year
  Sex: Female

DRUGS (8)
  1. OXYCONTIN [Suspect]
     Indication: PAIN
     Dosage: 40 MG, BID, ORAL; 60 MG, BID, ORAL; 20 MG, BID, ORAL
     Route: 048
     Dates: start: 20011206
  2. NEURONTIN [Concomitant]
  3. PAXIL [Concomitant]
  4. NORTRIPTYLINE HCL [Concomitant]
  5. PERCOCET [Concomitant]
  6. VIOXX [Concomitant]
  7. ASPIRIN [Concomitant]
  8. ROXICET [Concomitant]

REACTIONS (22)
  - AMNESIA [None]
  - ANXIETY [None]
  - BRONCHITIS [None]
  - CHRONIC OBSTRUCTIVE PULMONARY DISEASE [None]
  - CONSTIPATION [None]
  - DELUSIONAL DISORDER, UNSPECIFIED TYPE [None]
  - DEPRESSION [None]
  - DRUG DEPENDENCE [None]
  - DRUG WITHDRAWAL SYNDROME [None]
  - DYSPNOEA [None]
  - ERYTHEMA [None]
  - HYPOXIA [None]
  - OBSESSIVE-COMPULSIVE DISORDER [None]
  - OVARIAN CANCER [None]
  - OVERDOSE [None]
  - PAIN [None]
  - PAIN IN EXTREMITY [None]
  - PARANOIA [None]
  - RASH [None]
  - SCAB [None]
  - SKIN LESION [None]
  - SKIN ULCER [None]
